FAERS Safety Report 9737036 (Version 2)
Quarter: 2013Q4

REPORT INFORMATION
  Report Type: Spontaneous
  Country: US (occurrence: US)
  Receive Date: 20131206
  Receipt Date: 20131206
  Transmission Date: 20140711
  Serious: No
  Sender: FDA-Public Use
  Company Number: US-GILEAD-2009-0024215

PATIENT
  Sex: Female
  Weight: 57.15 kg

DRUGS (16)
  1. LETAIRIS [Suspect]
     Indication: PULMONARY ARTERIAL HYPERTENSION
     Route: 048
     Dates: start: 20090811
  2. REVATIO [Concomitant]
  3. CARDIZEM [Concomitant]
  4. LASIX [Concomitant]
  5. LORTAB [Concomitant]
  6. EVOXAC [Concomitant]
  7. CELEXA [Concomitant]
  8. MOBIC [Concomitant]
  9. LYRICA [Concomitant]
  10. PREDNISONE [Concomitant]
  11. PLETAL [Concomitant]
  12. ASPIRIN [Concomitant]
  13. BONIVA [Concomitant]
  14. PRILOSEC [Concomitant]
  15. TUMS [Concomitant]
  16. MULTIVITAMINS [Concomitant]

REACTIONS (1)
  - Deafness [Unknown]
